FAERS Safety Report 13597917 (Version 3)
Quarter: 2017Q3

REPORT INFORMATION
  Report Type: Report from Study
  Country: US (occurrence: US)
  Receive Date: 20170531
  Receipt Date: 20170822
  Transmission Date: 20171127
  Serious: Yes (Other)
  Sender: FDA-Public Use
  Company Number: US-AMGEN-USASL2017070342

PATIENT
  Age: 72 Year
  Sex: Female

DRUGS (5)
  1. REPATHA [Suspect]
     Active Substance: EVOLOCUMAB
     Indication: HYPERLIPIDAEMIA
     Dosage: 140 MG, Q2WK
     Route: 065
     Dates: start: 201706
  2. REPATHA [Suspect]
     Active Substance: EVOLOCUMAB
     Dosage: 140 MG, QMO
     Route: 065
     Dates: end: 201706
  3. REPATHA [Suspect]
     Active Substance: EVOLOCUMAB
     Dosage: 140 MG, (HALF DOSE) Q2WK
     Route: 065
  4. REPATHA [Suspect]
     Active Substance: EVOLOCUMAB
     Indication: HYPERCHOLESTEROLAEMIA
     Dosage: 150 MG, (HALF DOSE),Q2WK
     Route: 065
  5. BABY ASPIRIN [Concomitant]
     Active Substance: ASPIRIN

REACTIONS (10)
  - Autoimmune disorder [Not Recovered/Not Resolved]
  - Feeling abnormal [Unknown]
  - Skin burning sensation [Not Recovered/Not Resolved]
  - Blood triglycerides increased [Unknown]
  - Quality of life decreased [Unknown]
  - Intentional product misuse [Unknown]
  - Renal impairment [Recovered/Resolved]
  - Chills [Recovered/Resolved]
  - Feeling cold [Unknown]
  - Condition aggravated [Unknown]
